FAERS Safety Report 5941928-0 (Version None)
Quarter: 2008Q4

REPORT INFORMATION
  Report Type: 
  Country: None (occurrence: None)
  Receive Date: 20081103
  Receipt Date: 20081021
  Transmission Date: 20090506
  Serious: Yes (Hospitalization, Other)
  Sender: FDA-Public Use
  Company Number: 2008BI010748

PATIENT
  Sex: Female
  Weight: 70.7611 kg

DRUGS (17)
  1. TYSABRI [Suspect]
     Indication: MULTIPLE SCLEROSIS
     Dosage: ; IV
     Route: 042
     Dates: start: 20050223, end: 20050223
  2. TYSABRI [Suspect]
     Indication: MULTIPLE SCLEROSIS
     Dosage: ; IV
     Route: 042
     Dates: start: 20061109
  3. ENDOCET [Concomitant]
  4. OXYGEN [Concomitant]
  5. AMBIEN CR [Concomitant]
  6. RESTORIL [Concomitant]
  7. VALIUM [Concomitant]
  8. XANAX [Concomitant]
  9. LASIX [Concomitant]
  10. POTASSIUM CHLORIDE [Concomitant]
  11. CRESTOR [Concomitant]
  12. DOXEPIN HCL [Concomitant]
  13. ELAVIL [Concomitant]
  14. BACLOFEN [Concomitant]
  15. SOMA [Concomitant]
  16. BENADRYL [Concomitant]
  17. OXYCONTIN [Concomitant]

REACTIONS (32)
  - ACTIVITIES OF DAILY LIVING IMPAIRED [None]
  - ANXIETY [None]
  - BACK PAIN [None]
  - BLOOD GLUCOSE DECREASED [None]
  - BLOOD POTASSIUM DECREASED [None]
  - BRONCHITIS VIRAL [None]
  - CARDIAC PERFORATION [None]
  - CLAUSTROPHOBIA [None]
  - DEPRESSION [None]
  - DISEASE PROGRESSION [None]
  - DRY MOUTH [None]
  - FALL [None]
  - FOOT FRACTURE [None]
  - HAEMOGLOBIN DECREASED [None]
  - INSOMNIA [None]
  - JOINT SPRAIN [None]
  - MEMORY IMPAIRMENT [None]
  - MENTAL DISORDER [None]
  - MULTIPLE SCLEROSIS [None]
  - NASOPHARYNGITIS [None]
  - NERVOUSNESS [None]
  - OEDEMA PERIPHERAL [None]
  - OVERDOSE [None]
  - PNEUMONIA VIRAL [None]
  - RENAL PAIN [None]
  - RESPIRATORY TRACT INFECTION [None]
  - STRESS [None]
  - SYNCOPE [None]
  - TEMPERATURE INTOLERANCE [None]
  - TREMOR [None]
  - VIRAL INFECTION [None]
  - WEIGHT DECREASED [None]
